FAERS Safety Report 14185606 (Version 1)
Quarter: 2017Q4

REPORT INFORMATION
  Report Type: Spontaneous
  Country: GB (occurrence: GB)
  Receive Date: 20171112
  Receipt Date: 20171112
  Transmission Date: 20180321
  Serious: No
  Sender: FDA-Public Use
  Company Number: None

PATIENT
  Age: 65 Year
  Sex: Female
  Weight: 82 kg

DRUGS (4)
  1. GENFURA [Suspect]
     Active Substance: NITROFURANTOIN
     Indication: URINARY TRACT INFECTION
     Dosage: ?          QUANTITY:1 TABLET(S);?
     Route: 048
     Dates: start: 20171018, end: 20171020
  2. HRT [Concomitant]
     Active Substance: UNSPECIFIED INGREDIENT
  3. PROPANOLOL [Concomitant]
     Active Substance: PROPRANOLOL HYDROCHLORIDE
  4. LOFEPRAMINE [Concomitant]
     Active Substance: LOFEPRAMINE

REACTIONS (6)
  - Headache [None]
  - Diarrhoea [None]
  - Pain in extremity [None]
  - Mobility decreased [None]
  - Abdominal pain upper [None]
  - Arthralgia [None]

NARRATIVE: CASE EVENT DATE: 20171023
